FAERS Safety Report 26212371 (Version 1)
Quarter: 2025Q4

REPORT INFORMATION
  Report Type: Report from Study
  Country: US (occurrence: US)
  Receive Date: 20251230
  Receipt Date: 20251230
  Transmission Date: 20260118
  Serious: Yes (Other)
  Sender: SANOFI AVENTIS
  Company Number: US-SA-2025SA239175

PATIENT
  Age: 60 Year
  Sex: Female

DRUGS (1)
  1. TEPLIZUMAB-MZWV [Suspect]
     Active Substance: TEPLIZUMAB-MZWV
     Indication: Diabetes prophylaxis
     Dosage: UNK
     Route: 042
     Dates: start: 20250804

REACTIONS (2)
  - Non-small cell lung cancer stage I [Unknown]
  - Rash [Unknown]

NARRATIVE: CASE EVENT DATE: 20250101
